FAERS Safety Report 5880144-8 (Version None)
Quarter: 2008Q3

REPORT INFORMATION
  Report Type: 
  Country: None (occurrence: None)
  Receive Date: 20080912
  Receipt Date: 20080902
  Transmission Date: 20090109
  Serious: Yes (Disabling)
  Sender: FDA-Public Use
  Company Number: FI-PFIZER INC-2008073068

PATIENT
  Sex: Female

DRUGS (5)
  1. CLINDAMYCIN HCL [Suspect]
     Indication: TONSILLITIS
     Route: 048
     Dates: start: 20080605, end: 20080614
  2. DIPYRIN [Concomitant]
     Indication: ANGIOPATHY
     Route: 048
     Dates: start: 20040101
  3. VALSARTAN [Concomitant]
     Indication: HYPERTENSION
     Route: 048
     Dates: start: 20040101
  4. SPESICOR DOS [Concomitant]
     Indication: CARDIAC DISORDER
     Route: 048
     Dates: start: 19980101
  5. PRIMASPAN [Concomitant]
     Indication: ANGIOPATHY
     Route: 048
     Dates: start: 20060101

REACTIONS (3)
  - AGEUSIA [None]
  - ANOSMIA [None]
  - URTICARIA [None]
